FAERS Safety Report 5622249-2 (Version None)
Quarter: 2008Q1

REPORT INFORMATION
  Report Type: 
  Country: None (occurrence: None)
  Receive Date: 20080206
  Receipt Date: 20080123
  Transmission Date: 20080703
  Serious: Yes (Death)
  Sender: FDA-Public Use
  Company Number: POMP-1000029

PATIENT
  Age: 7 Month
  Sex: Female
  Weight: 5.9 kg

DRUGS (2)
  1. MYOZYME [Suspect]
     Indication: GLYCOGEN STORAGE DISEASE TYPE II
     Dosage: INTRAVENOUS
     Route: 042
     Dates: end: 20080103
  2. CAPTOPRIL [Concomitant]

REACTIONS (4)
  - CARDIAC FAILURE [None]
  - PNEUMONIA [None]
  - PYELONEPHRITIS [None]
  - TACHYCARDIA [None]
